FAERS Safety Report 4541028-0 (Version None)
Quarter: 2004Q4

REPORT INFORMATION
  Report Type: 
  Country: None (occurrence: None)
  Receive Date: 20041228
  Receipt Date: 20041213
  Transmission Date: 20050328
  Serious: Yes (Hospitalization)
  Sender: FDA-Public Use
  Company Number: WAES 0410DEU00025

PATIENT
  Age: 69 Year
  Sex: Male

DRUGS (5)
  1. VIOXX [Suspect]
     Indication: NEOPLASM PROPHYLAXIS
     Dosage: 256 MG/DAILY/PO
     Route: 048
     Dates: start: 20040614, end: 20041001
  2. ASPIRIN [Concomitant]
  3. BISOPROLOL FUMARATE [Concomitant]
  4. HYDROCHLOROTHIAZIDE (+) RAMIPRIL [Concomitant]
  5. SIMVASTATIN [Concomitant]

REACTIONS (9)
  - ATRIAL FIBRILLATION [None]
  - BLOOD PRESSURE INCREASED [None]
  - BLOOD PRESSURE SYSTOLIC INCREASED [None]
  - DILATATION ATRIAL [None]
  - EFFUSION [None]
  - EXTRASYSTOLES [None]
  - HYPOKINESIA [None]
  - LUNG INFILTRATION [None]
  - MITRAL VALVE INCOMPETENCE [None]
